FAERS Safety Report 19092060 (Version 1)
Quarter: 2021Q2

REPORT INFORMATION
  Report Type: Spontaneous
  Country: US (occurrence: US)
  Receive Date: 20210403
  Receipt Date: 20210403
  Transmission Date: 20210717
  Serious: Yes (Hospitalization)
  Sender: FDA-Public Use
  Company Number: None

PATIENT
  Sex: Male
  Weight: 14.3 kg

DRUGS (16)
  1. APREPITANT ORAL SUSPENSION [Concomitant]
  2. POLYETHYLENE GLYCOL [Concomitant]
     Active Substance: POLYETHYLENE GLYCOLS
  3. GABAPENTIN ORAL SOLUTION [Concomitant]
     Active Substance: GABAPENTIN
  4. SULFAMETHOXAZOLE?TRIMETHOPRIM ORAL SUSPENSION [Concomitant]
  5. 5?FLUOROURACIL (5?FU) [Suspect]
     Active Substance: FLUOROURACIL
  6. ZINECARD [Suspect]
     Active Substance: DEXRAZOXANE HYDROCHLORIDE
  7. VINCRISTINE SULFATE. [Concomitant]
     Active Substance: VINCRISTINE SULFATE
  8. FAMOTIDINE ORAL SUSPENSION [Concomitant]
  9. NO DRUG NAME [Concomitant]
  10. D5?0.45% + POTASSIUM CHLORIDE AND MAGNESIUM SULFATE ADDITIVES [Concomitant]
  11. LORAZEPAM. [Concomitant]
     Active Substance: LORAZEPAM
  12. MAGNESIUM OXIDE ORAL LIQUID [Concomitant]
  13. OXYCODONE ORLA SOLUTION [Concomitant]
  14. SENNA ORAL SOLUTION [Concomitant]
  15. DOXORUBICIN HYDROCHLORIDE. [Concomitant]
     Active Substance: DOXORUBICIN HYDROCHLORIDE
  16. ONDANSETRON [Concomitant]
     Active Substance: ONDANSETRON

REACTIONS (9)
  - Sepsis [None]
  - Haemorrhage [None]
  - Sinusitis [None]
  - Somnolence [None]
  - Haemoglobin decreased [None]
  - Irritability [None]
  - Febrile neutropenia [None]
  - Sedation [None]
  - Agitation [None]

NARRATIVE: CASE EVENT DATE: 20210218
